FAERS Safety Report 20504898 (Version 1)
Quarter: 2022Q1

REPORT INFORMATION
  Report Type: Spontaneous
  Country: US (occurrence: US)
  Receive Date: 20220223
  Receipt Date: 20220223
  Transmission Date: 20220423
  Serious: No
  Sender: FDA-Public Use
  Company Number: US-CELGENE-USA-20220206033

PATIENT
  Sex: Female
  Weight: 51.756 kg

DRUGS (1)
  1. REVLIMID [Suspect]
     Active Substance: LENALIDOMIDE
     Indication: Chronic myelomonocytic leukaemia
     Dosage: 10 MILLIGRAM
     Route: 048
     Dates: start: 20200818

REACTIONS (2)
  - Hypertonic bladder [Unknown]
  - Diarrhoea [Unknown]
